FAERS Safety Report 23747813 (Version 1)
Quarter: 2024Q2

REPORT INFORMATION
  Report Type: Spontaneous
  Country: US (occurrence: US)
  Receive Date: 20240416
  Receipt Date: 20240416
  Transmission Date: 20240716
  Serious: No
  Sender: FDA-Public Use
  Company Number: US-PERRIGO-23US011884

PATIENT
  Age: 42 Year
  Sex: Female
  Weight: 77.098 kg

DRUGS (1)
  1. MICONAZOLE 3 COMBINATION PACK [Suspect]
     Active Substance: MICONAZOLE NITRATE
     Indication: Prophylaxis
     Dosage: 200 MG, SINGLE AT BEDTIME
     Route: 067
     Dates: start: 20231008, end: 20231008

REACTIONS (5)
  - Urethral pain [Recovering/Resolving]
  - Vaginal discharge [Recovering/Resolving]
  - Vaginal haemorrhage [Recovering/Resolving]
  - Vulvovaginal burning sensation [Recovering/Resolving]
  - Off label use [Unknown]

NARRATIVE: CASE EVENT DATE: 20231008
